FAERS Safety Report 7471467-X (Version None)
Quarter: 2011Q2

REPORT INFORMATION
  Report Type: 
  Country: None (occurrence: None)
  Receive Date: 20110511
  Receipt Date: 20110502
  Transmission Date: 20111010
  Serious: Yes (Hospitalization)
  Sender: FDA-Public Use
  Company Number: US-BIOGENIDEC-2011BI016621

PATIENT
  Age: 75 Year
  Sex: Female

DRUGS (4)
  1. TYSABRI [Concomitant]
     Indication: MULTIPLE SCLEROSIS
     Route: 042
  2. AVONEX [Suspect]
     Route: 030
     Dates: start: 20020801
  3. BLOOD THINNERS (NOS) [Concomitant]
  4. AVONEX [Suspect]
     Indication: MULTIPLE SCLEROSIS
     Route: 030
     Dates: start: 20060303

REACTIONS (6)
  - DEVICE RELATED INFECTION [None]
  - BONE EROSION [None]
  - HAEMORRHAGIC DISORDER [None]
  - STOMATITIS [None]
  - OEDEMA MOUTH [None]
  - BONE DEFORMITY [None]
